FAERS Safety Report 10038000 (Version 1)
Quarter: 2014Q1

REPORT INFORMATION
  Report Type: Spontaneous
  Country: US (occurrence: None)
  Receive Date: 20140325
  Receipt Date: 20140325
  Transmission Date: 20141002
  Serious: Yes (Other)
  Sender: FDA-Public Use
  Company Number: None

PATIENT
  Age: 50 Year
  Sex: Female
  Weight: 89.36 kg

DRUGS (1)
  1. XELODA [Suspect]
     Indication: BREAST CANCER
     Dosage: STRENGTH: 500?DOSE FORM: ORAL?FREQUENCY: AM + PM X 14 DAYS, 7 DAYS OFF, REPEAT?
     Route: 048

REACTIONS (2)
  - Fatigue [None]
  - Somnolence [None]
